FAERS Safety Report 7551885-1 (Version None)
Quarter: 2011Q2

REPORT INFORMATION
  Report Type: 
  Country: None (occurrence: None)
  Receive Date: 20110616
  Receipt Date: 20100715
  Transmission Date: 20111010
  Serious: Yes (Other)
  Sender: FDA-Public Use
  Company Number: US-JNJFOC-20110604867

PATIENT
  Sex: Female

DRUGS (2)
  1. CONCENTRATED TYLENOL INFANT DROPS [Suspect]
     Indication: RASH
     Route: 048
     Dates: start: 20100401, end: 20100401
  2. CONCENTRATED TYLENOL INFANT DROPS [Suspect]
     Indication: PYREXIA
     Route: 048
     Dates: start: 20100401, end: 20100401

REACTIONS (2)
  - PYREXIA [None]
  - PRODUCT QUALITY ISSUE [None]
